FAERS Safety Report 7481336-7 (Version None)
Quarter: 2011Q2

REPORT INFORMATION
  Report Type: 
  Country: None (occurrence: None)
  Receive Date: 20110516
  Receipt Date: 20110506
  Transmission Date: 20111010
  Serious: Yes (Life-Threatening, Hospitalization, Other)
  Sender: FDA-Public Use
  Company Number: DE-NOVOPROD-301699

PATIENT
  Age: 77 Year
  Sex: Male
  Weight: 68 kg

DRUGS (5)
  1. ACTRAPHANE 30 PENFILL [Suspect]
     Indication: TYPE 2 DIABETES MELLITUS
     Dosage: UNK
     Route: 058
     Dates: start: 20090302, end: 20090303
  2. ACTRAPHANE 30 PENFILL [Suspect]
     Dosage: UNK
     Route: 058
     Dates: start: 20090305
  3. SIMVASTATIN [Suspect]
     Indication: PRODUCT USED FOR UNKNOWN INDICATION
     Dosage: UNK
     Route: 048
     Dates: start: 20070701, end: 20090922
  4. GLYBURIDE [Suspect]
     Indication: PRODUCT USED FOR UNKNOWN INDICATION
     Dosage: UNK
     Route: 048
     Dates: start: 20070701, end: 20090922
  5. ASPIRIN [Suspect]
     Indication: PRODUCT USED FOR UNKNOWN INDICATION
     Dosage: UNK
     Route: 048
     Dates: start: 20070725, end: 20091118

REACTIONS (3)
  - ANAEMIA HAEMOLYTIC AUTOIMMUNE [None]
  - HAEMOLYTIC ANAEMIA [None]
  - HYPERGLYCAEMIA [None]
